FAERS Safety Report 19291274 (Version 17)
Quarter: 2022Q3

REPORT INFORMATION
  Report Type: Spontaneous
  Country: US (occurrence: US)
  Receive Date: 20210523
  Receipt Date: 20220919
  Transmission Date: 20221026
  Serious: Yes (Hospitalization, Other)
  Sender: FDA-Public Use
  Company Number: US-GLAXOSMITHKLINE-US2021104474

PATIENT

DRUGS (15)
  1. ZEJULA [Suspect]
     Active Substance: NIRAPARIB
     Indication: Malignant peritoneal neoplasm
     Dosage: 100 MG, QD
     Route: 048
     Dates: start: 20210420
  2. ZEJULA [Suspect]
     Active Substance: NIRAPARIB
     Dosage: 100MG EVER OTHER DAY, ALTERNATING WITH 200MG EVERY OTHER DAY
     Route: 048
  3. ZEJULA [Suspect]
     Active Substance: NIRAPARIB
     Dosage: 200 MG, QD (QPM)
  4. ZEJULA [Suspect]
     Active Substance: NIRAPARIB
     Dosage: 200 MG, QD
     Route: 048
     Dates: end: 20211020
  5. ZEJULA [Suspect]
     Active Substance: NIRAPARIB
     Dosage: 100MG, QD
     Route: 048
     Dates: start: 20211021
  6. ZEJULA [Suspect]
     Active Substance: NIRAPARIB
     Dosage: 200 MG, QD
     Route: 048
  7. ZEJULA [Suspect]
     Active Substance: NIRAPARIB
     Dosage: 100 MG, QD
     Dates: start: 20211104
  8. ZEJULA [Suspect]
     Active Substance: NIRAPARIB
     Dosage: 200 MG, QD
  9. ZEJULA [Suspect]
     Active Substance: NIRAPARIB
     Dosage: 100 MG, BID (ONE IN THE AM AND ONE IN THE PM)
  10. ZEJULA [Suspect]
     Active Substance: NIRAPARIB
     Dosage: 200 MG, QD AT BEDTIME
     Route: 048
  11. ZEJULA [Suspect]
     Active Substance: NIRAPARIB
     Dosage: 100 MG, QD
  12. ZEJULA [Suspect]
     Active Substance: NIRAPARIB
     Dosage: 200 MG, QD
     Route: 048
  13. ZEJULA [Suspect]
     Active Substance: NIRAPARIB
     Dosage: 100 MG, QD
     Route: 048
  14. ZEJULA [Suspect]
     Active Substance: NIRAPARIB
     Dosage: 200 MG DAILY ON WEDNESDAY AND SATURDAY, 100 MG DAILY EVERY OTHER DAY
  15. ZEJULA [Suspect]
     Active Substance: NIRAPARIB
     Dosage: UNK UNK, Z (100 MG EVERY OTHER DAY WITH 200MG EVERY OTHER DAY)
     Dates: end: 20220718

REACTIONS (24)
  - Femur fracture [Unknown]
  - Catheter removal [Unknown]
  - Diabetes mellitus [Unknown]
  - Decreased appetite [Recovered/Resolved]
  - Constipation [Recovered/Resolved with Sequelae]
  - Haemoglobin decreased [Recovered/Resolved with Sequelae]
  - Blood pressure increased [Recovering/Resolving]
  - Blood pressure fluctuation [Recovering/Resolving]
  - Dizziness [Unknown]
  - Fall [Unknown]
  - Movement disorder [Recovered/Resolved]
  - Gait inability [Recovering/Resolving]
  - Anaemia of chronic disease [Recovered/Resolved]
  - Anaemia [Recovered/Resolved]
  - Epistaxis [Not Recovered/Not Resolved]
  - Herpes zoster [Recovering/Resolving]
  - Productive cough [Unknown]
  - Asthenia [Unknown]
  - Feeling abnormal [Unknown]
  - Vomiting [Unknown]
  - Blood glucose increased [Unknown]
  - Inappropriate schedule of product administration [Recovered/Resolved with Sequelae]
  - Intentional product misuse [Unknown]
  - Off label use [Unknown]

NARRATIVE: CASE EVENT DATE: 20210701
